FAERS Safety Report 16874583 (Version 1)
Quarter: 2019Q4

REPORT INFORMATION
  Report Type: Spontaneous
  Country: NO (occurrence: NO)
  Receive Date: 20191001
  Receipt Date: 20191001
  Transmission Date: 20200122
  Serious: Yes (Life-Threatening)
  Sender: FDA-Public Use
  Company Number: NO-MYLANLABS-2019M1091878

PATIENT
  Age: 52 Year
  Sex: Female

DRUGS (6)
  1. HEPARIN [Suspect]
     Active Substance: HEPARIN SODIUM
     Indication: PRODUCT USED FOR UNKNOWN INDICATION
     Dosage: 3000 INTERNATIONAL UNIT
     Dates: start: 20190503, end: 20190503
  2. LIDOCAINE. [Suspect]
     Active Substance: LIDOCAINE
     Indication: PRODUCT USED FOR UNKNOWN INDICATION
     Dosage: UNK
     Route: 058
     Dates: start: 20190503, end: 20190503
  3. PROPOFOL. [Concomitant]
     Active Substance: PROPOFOL
     Indication: ANAESTHESIA PROCEDURE
     Dosage: 1110 MILLIGRAM
     Route: 042
     Dates: start: 20190503, end: 20190503
  4. REMIFENTANIL [Concomitant]
     Active Substance: REMIFENTANIL
     Indication: ANAESTHESIA PROCEDURE
     Dosage: 1.2 MILLIGRAM
     Route: 042
     Dates: start: 20190503, end: 20190503
  5. OMNIPAQUE [Suspect]
     Active Substance: IOHEXOL
     Indication: X-RAY
     Dosage: 21 GRAM
     Route: 042
     Dates: start: 20190503, end: 20190503
  6. CISATRACURIUM. [Concomitant]
     Active Substance: CISATRACURIUM
     Indication: ANAESTHESIA PROCEDURE
     Dosage: UNK

REACTIONS (2)
  - Circulatory collapse [Recovered/Resolved]
  - Anaphylactic reaction [Recovered/Resolved]

NARRATIVE: CASE EVENT DATE: 20190503
